FAERS Safety Report 6746458-4 (Version None)
Quarter: 2010Q2

REPORT INFORMATION
  Report Type: 
  Country: None (occurrence: None)
  Receive Date: 20100528
  Receipt Date: 20091030
  Transmission Date: 20101027
  Serious: No
  Sender: FDA-Public Use
  Company Number: US-ASTRAZENECA-2009SE32093

PATIENT
  Sex: Female

DRUGS (5)
  1. PRILOSEC OTC [Suspect]
     Dosage: 1 TABLET, 1 /DAY FOR 11 DAYS
     Route: 048
     Dates: start: 20091009, end: 20091019
  2. PRILOSEC OTC [Suspect]
     Dosage: 1 TABLET 2/DAY FOR 10DAYS
     Route: 048
     Dates: start: 20091020, end: 20091030
  3. THYROID THERAPY [Concomitant]
  4. LYRICA [Concomitant]
  5. ZOLPIDEM [Concomitant]

REACTIONS (2)
  - DRUG INEFFECTIVE [None]
  - ORAL DISCOMFORT [None]
